FAERS Safety Report 10582259 (Version 2)
Quarter: 2015Q2

REPORT INFORMATION
  Report Type: Report from Study
  Country: US (occurrence: US)
  Receive Date: 20141113
  Receipt Date: 20150527
  Transmission Date: 20150821
  Serious: Yes (Other)
  Sender: FDA-Public Use
  Company Number: US-GILEAD-2014-0122205

PATIENT
  Age: 74 Year
  Sex: Female
  Weight: 78.5 kg

DRUGS (23)
  1. OMEPRAZOLE. [Concomitant]
     Active Substance: OMEPRAZOLE
  2. BENADRYL [Concomitant]
     Active Substance: DIPHENHYDRAMINE HYDROCHLORIDE
     Indication: SINUS DISORDER
  3. GENERLAC [Concomitant]
     Active Substance: LACTULOSE
  4. NIFEDIPINE. [Concomitant]
     Active Substance: NIFEDIPINE
  5. ZYRTEC [Concomitant]
     Active Substance: CETIRIZINE HYDROCHLORIDE
  6. AMBRISENTAN [Suspect]
     Active Substance: AMBRISENTAN
     Dosage: 5 MG, UNK
     Route: 065
     Dates: start: 20140926
  7. ALPHAGAN P [Concomitant]
     Active Substance: BRIMONIDINE TARTRATE
  8. COD LIVER OIL [Concomitant]
     Active Substance: COD LIVER OIL
  9. AMBRISENTAN [Suspect]
     Active Substance: AMBRISENTAN
     Indication: PULMONARY ARTERIAL HYPERTENSION
     Dosage: 10 MG, QD
     Route: 065
  10. ASPIRIN                            /00002701/ [Concomitant]
     Active Substance: ASPIRIN
  11. NATEGLINIDE. [Concomitant]
     Active Substance: NATEGLINIDE
  12. RENO                               /00049401/ [Concomitant]
  13. VITAMIN E                          /00110502/ [Concomitant]
  14. BETOPTIC [Concomitant]
     Active Substance: BETAXOLOL HYDROCHLORIDE
  15. FLUTICASONE [Concomitant]
     Active Substance: FLUTICASONE\FLUTICASONE PROPIONATE
  16. PREDNISOLONE ACETATE. [Concomitant]
     Active Substance: PREDNISOLONE ACETATE
  17. TYLENOL EXTRA STRENGTH [Concomitant]
     Active Substance: ACETAMINOPHEN
  18. VITAMIN D3 [Concomitant]
     Active Substance: CHOLECALCIFEROL
  19. DAILY VITAMINS [Concomitant]
  20. LOSARTAN [Concomitant]
     Active Substance: LOSARTAN
  21. REFRESH TEARS [Concomitant]
     Active Substance: CARBOXYMETHYLCELLULOSE SODIUM
  22. RENAGEL [Concomitant]
     Active Substance: SEVELAMER HYDROCHLORIDE
  23. SENSIPAR [Concomitant]
     Active Substance: CINACALCET HYDROCHLORIDE

REACTIONS (2)
  - Dialysis [Unknown]
  - Blood pressure decreased [Unknown]
